FAERS Safety Report 18965091 (Version 1)
Quarter: 2021Q1

REPORT INFORMATION
  Report Type: Spontaneous
  Country: US (occurrence: US)
  Receive Date: 20210303
  Receipt Date: 20210303
  Transmission Date: 20210420
  Serious: Yes (Other)
  Sender: FDA-Public Use
  Company Number: US-SA-2021SA061148

PATIENT
  Age: 88 Year
  Sex: Female

DRUGS (1)
  1. LANTUS SOLOSTAR [Suspect]
     Active Substance: INSULIN GLARGINE
     Indication: TYPE 2 DIABETES MELLITUS
     Dosage: 6 IU, DAY
     Route: 065
     Dates: start: 20201112

REACTIONS (4)
  - Hip fracture [Recovering/Resolving]
  - Gait disturbance [Unknown]
  - Visual impairment [Unknown]
  - Speech disorder [Unknown]
